FAERS Safety Report 24234048 (Version 1)
Quarter: 2024Q3

REPORT INFORMATION
  Report Type: Spontaneous
  Country: CN (occurrence: CN)
  Receive Date: 20240821
  Receipt Date: 20240821
  Transmission Date: 20241017
  Serious: Yes (Other)
  Sender: BAYER
  Company Number: CN-BAYER-2024A118938

PATIENT
  Age: 60 Year
  Sex: Male
  Weight: 70 kg

DRUGS (1)
  1. ULTRAVIST [Suspect]
     Active Substance: IOPROMIDE
     Indication: Computerised tomogram thorax
     Dosage: 100 ML, ONCE
     Route: 040
     Dates: start: 20240806, end: 20240806

REACTIONS (8)
  - Abdominal pain lower [Recovered/Resolved]
  - Haematuria [Recovered/Resolved]
  - Contrast media deposition [Recovering/Resolving]
  - Renal hydrocele [None]
  - Back pain [Recovered/Resolved]
  - Ureteric dilatation [None]
  - Nausea [Recovered/Resolved]
  - Vomiting [Recovered/Resolved]

NARRATIVE: CASE EVENT DATE: 20240806
